FAERS Safety Report 6760956-9 (Version None)
Quarter: 2010Q2

REPORT INFORMATION
  Report Type: 
  Country: None (occurrence: None)
  Receive Date: 20100608
  Receipt Date: 20100601
  Transmission Date: 20101027
  Serious: Yes (Hospitalization)
  Sender: FDA-Public Use
  Company Number: US-GILEAD-2010-0028613

PATIENT
  Sex: Female
  Weight: 56.296 kg

DRUGS (14)
  1. LETAIRIS [Suspect]
     Indication: PULMONARY ARTERIAL HYPERTENSION
     Route: 048
     Dates: start: 20091201
  2. FLOLAN [Concomitant]
  3. TYLENOL [Concomitant]
  4. HEPARIN [Concomitant]
  5. SODIUM CHLORIDE [Concomitant]
  6. EPIPEN [Concomitant]
  7. GABAPENTIN [Concomitant]
  8. DOPAMINE HCL [Concomitant]
  9. COUMADIN [Concomitant]
  10. FERROUS GLUC [Concomitant]
  11. METHYLPREDNISOLONE [Concomitant]
  12. PREDNISONE [Concomitant]
  13. PEPCID [Concomitant]
  14. PAXIL [Concomitant]

REACTIONS (1)
  - ASCITES [None]
